FAERS Safety Report 21211546 (Version 1)
Quarter: 2022Q3

REPORT INFORMATION
  Report Type: Spontaneous
  Country: CA (occurrence: None)
  Receive Date: 20220815
  Receipt Date: 20220815
  Transmission Date: 20221026
  Serious: Yes (Other)
  Sender: FDA-Public Use
  Company Number: CA-ROCHE-3158783

PATIENT
  Sex: Male

DRUGS (12)
  1. RITUXIMAB [Suspect]
     Active Substance: RITUXIMAB
     Indication: Non-Hodgkin^s lymphoma unspecified histology indolent
     Route: 065
     Dates: start: 20180118, end: 20180501
  2. CYCLOPHOSPHAMIDE [Suspect]
     Active Substance: CYCLOPHOSPHAMIDE
     Indication: Non-Hodgkin^s lymphoma unspecified histology indolent
     Route: 065
     Dates: start: 20180118, end: 20180501
  3. DOXORUBICIN HYDROCHLORIDE [Suspect]
     Active Substance: DOXORUBICIN HYDROCHLORIDE
     Indication: Non-Hodgkin^s lymphoma unspecified histology indolent
     Route: 065
     Dates: start: 20180118, end: 20180501
  4. VINCRISTINE [Suspect]
     Active Substance: VINCRISTINE
     Indication: Non-Hodgkin^s lymphoma unspecified histology indolent
     Route: 065
     Dates: start: 20180118, end: 20180501
  5. PREDNISONE [Suspect]
     Active Substance: PREDNISONE
     Indication: Non-Hodgkin^s lymphoma unspecified histology indolent
     Route: 065
     Dates: start: 20180118, end: 20180501
  6. DEXAMETHASONE [Suspect]
     Active Substance: DEXAMETHASONE
     Indication: Non-Hodgkin^s lymphoma unspecified histology indolent
     Route: 065
     Dates: start: 20200925, end: 20201109
  7. CISPLATIN [Suspect]
     Active Substance: CISPLATIN
     Indication: Non-Hodgkin^s lymphoma unspecified histology indolent
     Route: 065
     Dates: start: 20200925, end: 20201109
  8. CARMUSTINE [Suspect]
     Active Substance: CARMUSTINE
     Indication: Non-Hodgkin^s lymphoma unspecified histology indolent
     Route: 065
     Dates: start: 20201201, end: 20210101
  9. ETOPOSIDE [Suspect]
     Active Substance: ETOPOSIDE
     Indication: Non-Hodgkin^s lymphoma unspecified histology indolent
     Route: 065
     Dates: start: 20201201, end: 20210101
  10. CYTARABINE [Suspect]
     Active Substance: CYTARABINE
     Indication: Non-Hodgkin^s lymphoma unspecified histology indolent
     Route: 065
     Dates: start: 20201201, end: 20210101
  11. POLATUZUMAB VEDOTIN [Suspect]
     Active Substance: POLATUZUMAB VEDOTIN
     Indication: Non-Hodgkin^s lymphoma unspecified histology indolent
     Route: 065
     Dates: start: 20211201, end: 20220601
  12. GEMCITABINE [Suspect]
     Active Substance: GEMCITABINE
     Indication: Non-Hodgkin^s lymphoma unspecified histology indolent
     Route: 065
     Dates: start: 20200925, end: 20201109

REACTIONS (1)
  - Non-Hodgkin^s lymphoma [Unknown]
